FAERS Safety Report 7149488-6 (Version None)
Quarter: 2010Q4

REPORT INFORMATION
  Report Type: 
  Country: None (occurrence: None)
  Receive Date: 20101209
  Receipt Date: 20101130
  Transmission Date: 20110411
  Serious: Yes (Hospitalization)
  Sender: FDA-Public Use
  Company Number: DE-ABBOTT-10P-062-0689082-00

PATIENT
  Sex: Male
  Weight: 47 kg

DRUGS (8)
  1. ZEMPLAR [Suspect]
     Indication: HYPERPARATHYROIDISM SECONDARY
     Dosage: 40 MCG PER WEEK
     Route: 042
     Dates: start: 20090218
  2. METOPROLOL [Concomitant]
     Indication: PRODUCT USED FOR UNKNOWN INDICATION
     Dosage: 700MG PER WEEK
     Route: 048
     Dates: start: 20090123
  3. DICLOFENAC [Concomitant]
     Indication: PRODUCT USED FOR UNKNOWN INDICATION
     Dosage: 350 MG PER WEEK
     Route: 048
     Dates: start: 20071026
  4. FOSRENOL [Concomitant]
     Indication: PRODUCT USED FOR UNKNOWN INDICATION
     Dosage: 21000 MG PER WEEK
     Route: 048
     Dates: start: 20080806
  5. MIMPARA [Concomitant]
     Indication: PRODUCT USED FOR UNKNOWN INDICATION
     Dosage: 210 MG PER WEEK
     Route: 048
     Dates: start: 20080903
  6. VIGANTOLETTEN [Concomitant]
     Indication: PRODUCT USED FOR UNKNOWN INDICATION
     Dosage: 3500 IU PER WEEK
     Route: 048
     Dates: start: 20090123
  7. FERRLECIT [Concomitant]
     Indication: PRODUCT USED FOR UNKNOWN INDICATION
     Dosage: 80MG/125MG PER WEEK
     Route: 042
     Dates: start: 20080902
  8. ARANESP [Concomitant]
     Indication: PRODUCT USED FOR UNKNOWN INDICATION
     Dosage: 50 MCG PER WEEK
     Route: 042
     Dates: start: 20071103

REACTIONS (1)
  - ABSCESS [None]
